FAERS Safety Report 9648595 (Version 2)
Quarter: 2013Q4

REPORT INFORMATION
  Report Type: Report from Study
  Country: PL (occurrence: PL)
  Receive Date: 20131028
  Receipt Date: 20131108
  Transmission Date: 20140711
  Serious: Yes (Death, Other)
  Sender: FDA-Public Use
  Company Number: PL-ROCHE-1293943

PATIENT
  Age: 53 Year
  Sex: Female
  Weight: 96 kg

DRUGS (8)
  1. MABTHERA [Suspect]
     Indication: DIFFUSE LARGE B-CELL LYMPHOMA
     Route: 065
  2. ETOPOSIDE [Suspect]
     Indication: DIFFUSE LARGE B-CELL LYMPHOMA
     Route: 042
     Dates: start: 20130807, end: 20130809
  3. CARBOPLATIN [Suspect]
     Indication: DIFFUSE LARGE B-CELL LYMPHOMA
     Route: 042
     Dates: start: 20130808, end: 20130808
  4. HOLOXAN [Suspect]
     Indication: DIFFUSE LARGE B-CELL LYMPHOMA
     Route: 042
     Dates: start: 20130808, end: 20130808
  5. VINCRISTINE [Concomitant]
     Indication: DIFFUSE LARGE B-CELL LYMPHOMA
  6. DOXORUBICIN [Concomitant]
     Indication: DIFFUSE LARGE B-CELL LYMPHOMA
  7. CYCLOPHOSPHAMIDE [Concomitant]
     Indication: DIFFUSE LARGE B-CELL LYMPHOMA
  8. PREDNISOLONE [Concomitant]
     Indication: DIFFUSE LARGE B-CELL LYMPHOMA

REACTIONS (6)
  - Multi-organ failure [Fatal]
  - Renal failure [Fatal]
  - Pneumonia [Fatal]
  - Bone marrow failure [Fatal]
  - Pelvic venous thrombosis [Unknown]
  - Deep vein thrombosis [Unknown]
